FAERS Safety Report 8450594-4 (Version None)
Quarter: 2012Q2

REPORT INFORMATION
  Report Type: 
  Country: None (occurrence: None)
  Receive Date: 20120604
  Receipt Date: 20120525
  Transmission Date: 20120825
  Serious: Yes (Other)
  Sender: FDA-Public Use
  Company Number: 2012032481

PATIENT
  Age: 3 Year
  Sex: Female

DRUGS (4)
  1. IMMUNE GLOBULIN INTRAVENOUS (HUMAN) [Suspect]
  2. IMMUNE GLOBULIN INTRAVENOUS (HUMAN) [Suspect]
     Indication: SECONDARY IMMUNODEFICIENCY
     Dosage: 2.5 G QD, 2.5 G QD
     Route: 042
     Dates: start: 20120426, end: 20120426
  3. IMMUNE GLOBULIN INTRAVENOUS (HUMAN) [Suspect]
     Indication: SECONDARY IMMUNODEFICIENCY
     Dosage: 2.5 G QD, 2.5 G QD
     Route: 042
     Dates: start: 20111228, end: 20111228
  4. BACTRAMIN (BACTRIM /00086101/) [Concomitant]

REACTIONS (4)
  - ANAPHYLACTOID REACTION [None]
  - PYREXIA [None]
  - FEELING ABNORMAL [None]
  - OFF LABEL USE [None]
